FAERS Safety Report 18101527 (Version 1)
Quarter: 2020Q3

REPORT INFORMATION
  Report Type: Spontaneous
  Country: US (occurrence: US)
  Receive Date: 20200801
  Receipt Date: 20200801
  Transmission Date: 20201103
  Serious: No
  Sender: FDA-Public Use
  Company Number: US-TEVA-2020-US-1807784

PATIENT
  Age: 68 Year
  Sex: Male

DRUGS (1)
  1. METOPROLOL SUCCINATE 50 MG ER TEVA [Suspect]
     Active Substance: METOPROLOL SUCCINATE
     Indication: TACHYCARDIA PAROXYSMAL
     Route: 065
     Dates: start: 20200625, end: 20200723

REACTIONS (6)
  - Drug eruption [Recovering/Resolving]
  - Urticaria [Not Recovered/Not Resolved]
  - Weight increased [Recovering/Resolving]
  - Product substitution issue [Unknown]
  - Peripheral swelling [Recovering/Resolving]
  - Intentional dose omission [Unknown]

NARRATIVE: CASE EVENT DATE: 202007
